FAERS Safety Report 14545993 (Version 1)
Quarter: 2018Q1

REPORT INFORMATION
  Report Type: Report from Study
  Country: PK (occurrence: PK)
  Receive Date: 20180219
  Receipt Date: 20180219
  Transmission Date: 20180509
  Serious: Yes (Death, Disabling)
  Sender: FDA-Public Use
  Company Number: PK-ROCHE-2069481

PATIENT
  Age: 54 Year
  Sex: Female

DRUGS (1)
  1. RISTOVA [Suspect]
     Active Substance: RITUXIMAB
     Indication: DIFFUSE LARGE B-CELL LYMPHOMA
     Route: 042
     Dates: start: 20180103, end: 20180126

REACTIONS (1)
  - Renal disorder [Fatal]
